FAERS Safety Report 24643144 (Version 1)
Quarter: 2024Q4

REPORT INFORMATION
  Report Type: Spontaneous
  Country: JP (occurrence: JP)
  Receive Date: 20241120
  Receipt Date: 20241120
  Transmission Date: 20250115
  Serious: Yes (Death, Other)
  Sender: ELI LILLY AND COMPANY
  Company Number: JP-ELI_LILLY_AND_COMPANY-JP202411011571

PATIENT
  Age: 78 Year
  Sex: Male
  Weight: 57.5 kg

DRUGS (8)
  1. RETEVMO [Suspect]
     Active Substance: SELPERCATINIB
     Indication: Medullary thyroid cancer
     Dosage: 160 MG, TID
     Route: 048
     Dates: start: 20220711, end: 20220731
  2. RETEVMO [Suspect]
     Active Substance: SELPERCATINIB
     Dosage: 40 MG, TID
     Route: 048
     Dates: start: 20220816, end: 20220822
  3. RETEVMO [Suspect]
     Active Substance: SELPERCATINIB
     Dosage: 80 MG, TID
     Route: 048
     Dates: start: 20220823, end: 20230110
  4. RETEVMO [Suspect]
     Active Substance: SELPERCATINIB
     Dosage: 40 MG, TID
     Route: 048
     Dates: start: 20230111, end: 20241028
  5. FAMOTIDINE D EMEC [Concomitant]
     Route: 048
  6. BICALUTAMIDE [Concomitant]
     Active Substance: BICALUTAMIDE
     Route: 048
  7. FUROSEMIDE [Concomitant]
     Active Substance: FUROSEMIDE
  8. AZILSARTAN OD [Concomitant]
     Route: 048

REACTIONS (3)
  - Hepatic function abnormal [Fatal]
  - Renal impairment [Unknown]
  - Pleural effusion [Unknown]

NARRATIVE: CASE EVENT DATE: 20241028
